FAERS Safety Report 10871162 (Version 3)
Quarter: 2015Q2

REPORT INFORMATION
  Report Type: Other
  Country: US (occurrence: US)
  Receive Date: 20150226
  Receipt Date: 20150505
  Transmission Date: 20150821
  Serious: Yes (Hospitalization, Other)
  Sender: FDA-Public Use
  Company Number: US-ACORDA-ACO_109148_2015

PATIENT
  Sex: Female

DRUGS (1)
  1. AMPYRA [Suspect]
     Active Substance: DALFAMPRIDINE
     Indication: GAIT DISTURBANCE
     Dosage: 10 MG, BID
     Route: 048
     Dates: start: 20140204, end: 20150213

REACTIONS (10)
  - Nervous system disorder [Unknown]
  - Blood creatinine abnormal [Recovered/Resolved]
  - Cardiac disorder [Unknown]
  - Overdose [Unknown]
  - Multiple sclerosis relapse [Unknown]
  - Memory impairment [Unknown]
  - Adverse event [Unknown]
  - Cerebrovascular accident [Unknown]
  - Dehydration [Unknown]
  - Therapy cessation [Unknown]
